FAERS Safety Report 23711828 (Version 1)
Quarter: 2024Q2

REPORT INFORMATION
  Report Type: Spontaneous
  Country: US (occurrence: US)
  Receive Date: 20240405
  Receipt Date: 20240405
  Transmission Date: 20240715
  Serious: No
  Sender: FDA-Public Use
  Company Number: US-KYOWAKIRIN-2024KK006900

PATIENT

DRUGS (18)
  1. NOURIANZ [Suspect]
     Active Substance: ISTRADEFYLLINE
     Indication: Parkinson^s disease
     Dosage: 40 MG, QD
     Route: 048
     Dates: start: 202312
  2. NOURIANZ [Suspect]
     Active Substance: ISTRADEFYLLINE
     Dosage: 40 MG, BID
     Route: 048
     Dates: start: 202403, end: 20240328
  3. TRAMADOL [Concomitant]
     Active Substance: TRAMADOL\TRAMADOL HYDROCHLORIDE
     Indication: Product used for unknown indication
     Dosage: 50 MG
     Route: 065
  4. ACETAMINOPHEN [Concomitant]
     Active Substance: ACETAMINOPHEN
     Indication: Analgesic therapy
     Dosage: 650 MG,8H
     Route: 065
  5. CLONAZEPAM [Concomitant]
     Active Substance: CLONAZEPAM
     Indication: Product used for unknown indication
     Dosage: 0.5 MG
     Route: 065
  6. COENZYME Q10 [Concomitant]
     Active Substance: DIETARY SUPPLEMENT\UBIDECARENONE
     Indication: Product used for unknown indication
     Dosage: 100 MG
     Route: 065
  7. EZETIMIBE [Concomitant]
     Active Substance: EZETIMIBE
     Indication: Product used for unknown indication
     Dosage: 10 MG
     Route: 065
  8. FLAX SEEDS [Concomitant]
     Active Substance: FLAX SEEDS
     Indication: Product used for unknown indication
     Dosage: 1000 MG
     Route: 065
  9. GLUCOSAMINE CHONDROITIN [CHONDROITIN SULFATE;GLUCOSAMINE] [Concomitant]
     Indication: Product used for unknown indication
     Dosage: UNK
     Route: 065
  10. MELOXICAM [Concomitant]
     Active Substance: MELOXICAM
     Indication: Product used for unknown indication
     Dosage: 15 MG
     Route: 065
  11. METHYLPHENIDATE [Concomitant]
     Active Substance: METHYLPHENIDATE
     Indication: Product used for unknown indication
     Dosage: 10 MG
     Route: 065
  12. MINERALS\VITAMINS [Concomitant]
     Active Substance: MINERALS\VITAMINS
     Indication: Product used for unknown indication
     Dosage: UNK
     Route: 065
  13. CYANOCOBALAMIN [Concomitant]
     Active Substance: CYANOCOBALAMIN
     Indication: Product used for unknown indication
     Dosage: 2000 UG,60^S
     Route: 065
  14. VITAMIN D3 [Concomitant]
     Active Substance: CHOLECALCIFEROL
     Indication: Product used for unknown indication
     Dosage: 2000 UNITS
     Route: 065
  15. DROXIDOPA [Concomitant]
     Active Substance: DROXIDOPA
     Indication: Product used for unknown indication
     Dosage: 100 MG
     Route: 065
  16. MEMANTINE [Concomitant]
     Active Substance: MEMANTINE
     Indication: Product used for unknown indication
     Dosage: 10 MG
     Route: 065
  17. CARBIDOPA\LEVODOPA [Concomitant]
     Active Substance: CARBIDOPA\LEVODOPA
     Indication: Product used for unknown indication
     Dosage: UNK,25/100
     Route: 065
  18. CARBIDOPA\LEVODOPA [Concomitant]
     Active Substance: CARBIDOPA\LEVODOPA
     Dosage: UNK,50/200 CR
     Route: 065

REACTIONS (1)
  - Incorrect dose administered [Recovered/Resolved]

NARRATIVE: CASE EVENT DATE: 20240301
